FAERS Safety Report 9932373 (Version 2)
Quarter: 2015Q1

REPORT INFORMATION
  Report Type: Spontaneous
  Country: US (occurrence: US)
  Receive Date: 20140228
  Receipt Date: 20150227
  Transmission Date: 20150721
  Serious: No
  Sender: FDA-Public Use
  Company Number: US-ABBVIE-13P-163-1171724-00

PATIENT
  Sex: Male

DRUGS (6)
  1. ANDROGEL [Suspect]
     Active Substance: TESTOSTERONE
     Indication: BLOOD TESTOSTERONE DECREASED
     Dosage: 2 PUMPS ON EACH ARM ONCE DAILY
  2. TESTIM [Suspect]
     Active Substance: TESTOSTERONE
     Indication: BLOOD TESTOSTERONE DECREASED
     Route: 062
     Dates: start: 20131001
  3. SOMA [Concomitant]
     Active Substance: CARISOPRODOL
     Indication: INSOMNIA
  4. AMBIEN [Concomitant]
     Active Substance: ZOLPIDEM TARTRATE
     Dates: start: 20131001
  5. ANDROGEL [Suspect]
     Active Substance: TESTOSTERONE
     Dosage: 1 PUMP ON EACH AM EVERY OTHER DAY
     Dates: start: 20131001
  6. AMBIEN [Concomitant]
     Active Substance: ZOLPIDEM TARTRATE
     Indication: INSOMNIA

REACTIONS (5)
  - Blood cholesterol increased [Unknown]
  - Abdominal pain upper [Unknown]
  - Dizziness [Unknown]
  - Vision blurred [Unknown]
  - Headache [Unknown]
